FAERS Safety Report 6801021-1 (Version None)
Quarter: 2010Q2

REPORT INFORMATION
  Report Type: 
  Country: None (occurrence: None)
  Receive Date: 20100624
  Receipt Date: 20100616
  Transmission Date: 20101027
  Serious: Yes (Other)
  Sender: FDA-Public Use
  Company Number: GER/GER/10/0013343

PATIENT
  Age: 58 Year
  Sex: Male
  Weight: 66 kg

DRUGS (1)
  1. CIPROBETA 500 MG FILMTABLETLEN (CIPROFLOXACIN HYDROCHLORIDE) [Suspect]
     Indication: GASTROENTERITIS BACTERIAL
     Dosage: 500 MG, 2 IN 1 D, ORAL
     Route: 048
     Dates: start: 20100429, end: 20100505

REACTIONS (2)
  - POLYMYOSITIS [None]
  - RHABDOMYOLYSIS [None]
